FAERS Safety Report 8190247-3 (Version None)
Quarter: 2012Q1

REPORT INFORMATION
  Report Type: 
  Country: None (occurrence: None)
  Receive Date: 20120307
  Receipt Date: 20120228
  Transmission Date: 20120608
  Serious: Yes (Disabling)
  Sender: FDA-Public Use
  Company Number: KR-BAYER-2012-019673

PATIENT
  Sex: Male

DRUGS (2)
  1. ASPIRIN [Suspect]
     Dosage: 100 DF, ONCE
     Route: 048
     Dates: start: 20120225, end: 20120225
  2. ASPIRIN [Suspect]
     Indication: SUICIDE ATTEMPT
     Dosage: 100 DF, ONCE
     Route: 048
     Dates: start: 20110101, end: 20110101

REACTIONS (6)
  - BLINDNESS UNILATERAL [None]
  - SPEECH DISORDER [None]
  - FACE OEDEMA [None]
  - ABDOMINAL DISTENSION [None]
  - CHROMATOPSIA [None]
  - LOCALISED OEDEMA [None]
